FAERS Safety Report 26032637 (Version 1)
Quarter: 2025Q4

REPORT INFORMATION
  Report Type: Spontaneous
  Country: US (occurrence: US)
  Receive Date: 20251112
  Receipt Date: 20251112
  Transmission Date: 20260117
  Serious: Yes (Hospitalization, Other)
  Sender: SOMERSET THERAPEUTICS, LLC
  Company Number: US-MIT-25-75-US-2025-SOM-LIT-00102

PATIENT
  Age: 15 Year
  Sex: Male

DRUGS (3)
  1. HALOPERIDOL DECANOATE [Suspect]
     Active Substance: HALOPERIDOL DECANOATE
     Indication: Aggression
     Dosage: MULTIPLE DOSES
     Route: 030
  2. HALOPERIDOL DECANOATE [Suspect]
     Active Substance: HALOPERIDOL DECANOATE
     Dosage: NUMEROUS DOSES
     Route: 048
  3. RISPERIDONE [Suspect]
     Active Substance: RISPERIDONE
     Indication: Mania
     Route: 048

REACTIONS (3)
  - Neuroleptic malignant syndrome [Recovering/Resolving]
  - Catatonia [Recovering/Resolving]
  - Product use in unapproved indication [Unknown]
